FAERS Safety Report 4948207-9 (Version None)
Quarter: 2006Q1

REPORT INFORMATION
  Report Type: 
  Country: None (occurrence: None)
  Receive Date: 20060313
  Receipt Date: 20060303
  Transmission Date: 20060701
  Serious: Yes (Death)
  Sender: FDA-Public Use
  Company Number: 163-20785-06010633

PATIENT
  Age: 84 Year
  Sex: Female

DRUGS (11)
  1. THALOMID [Suspect]
     Indication: MULTIPLE MYELOMA
     Dosage: 200 MG, DAILY, ORAL
     Route: 048
     Dates: start: 20050801, end: 20051001
  2. GLUCOTROL [Concomitant]
  3. LASIX [Concomitant]
  4. POTASSIUM CHLORIDE [Concomitant]
  5. AMIODARONE (AMIODARONE) [Concomitant]
  6. FOSAMAX (ALENDRONAE SODIUM) [Concomitant]
  7. PROTONIX [Concomitant]
  8. SENNA (SENNA) [Concomitant]
  9. COLACE (DOCUSATE SODIUM) [Concomitant]
  10. CALCIUM (CALCIUM) [Concomitant]
  11. VITAMIN D [Concomitant]

REACTIONS (2)
  - CARDIAC FAILURE [None]
  - RENAL FAILURE CHRONIC [None]
